FAERS Safety Report 23782756 (Version 7)
Quarter: 2024Q4

REPORT INFORMATION
  Report Type: Spontaneous
  Country: US (occurrence: US)
  Receive Date: 20240425
  Receipt Date: 20241022
  Transmission Date: 20250114
  Serious: No
  Sender: PFIZER
  Company Number: US-PFIZER INC-202400013670

PATIENT
  Age: 49 Year
  Sex: Female

DRUGS (3)
  1. GENOTROPIN [Suspect]
     Active Substance: SOMATROPIN
     Dosage: 0.35 MG, DAILY
  2. GENOTROPIN [Suspect]
     Active Substance: SOMATROPIN
     Dosage: ALTERNATE 0.3 AND 0.4 EVERY OTHER DAY
  3. GENOTROPIN [Suspect]
     Active Substance: SOMATROPIN
     Dosage: 0.4 MG

REACTIONS (9)
  - Illness [Unknown]
  - Malaise [Unknown]
  - Neck injury [Unknown]
  - Drug dose omission by device [Unknown]
  - Device failure [Unknown]
  - Device use issue [Unknown]
  - Device leakage [Unknown]
  - Device mechanical issue [Unknown]
  - Product prescribing error [Unknown]
